FAERS Safety Report 8853120 (Version 2)
Quarter: 2013Q1

REPORT INFORMATION
  Report Type: Spontaneous
  Country: FR (occurrence: FR)
  Receive Date: 20121022
  Receipt Date: 20130207
  Transmission Date: 20140127
  Serious: Yes (Disabling)
  Sender: FDA-Public Use
  Company Number: FR-ROCHE-1147640

PATIENT
  Age: 29 Year
  Sex: Female
  Weight: 98 kg

DRUGS (3)
  1. ROACTEMRA [Suspect]
     Indication: JUVENILE IDIOPATHIC ARTHRITIS
     Route: 042
     Dates: start: 201104, end: 20130130
  2. METHOTREXATE [Concomitant]
  3. CORTANCYL [Concomitant]
     Indication: JUVENILE IDIOPATHIC ARTHRITIS
     Route: 048
     Dates: start: 201101

REACTIONS (1)
  - Autoimmune thyroiditis [Unknown]
